FAERS Safety Report 17984181 (Version 1)
Quarter: 2020Q3

REPORT INFORMATION
  Report Type: Spontaneous
  Country: US (occurrence: US)
  Receive Date: 20200706
  Receipt Date: 20200706
  Transmission Date: 20201103
  Serious: No
  Sender: FDA-Public Use
  Company Number: None

PATIENT
  Age: 36 Year
  Sex: Female
  Weight: 58.5 kg

DRUGS (9)
  1. ELURYNG [Suspect]
     Active Substance: ETHINYL ESTRADIOL\ETONOGESTREL
     Indication: PREMENSTRUAL SYNDROME
     Dosage: ?          OTHER FREQUENCY:MONTHLY;?
     Route: 067
  2. CLARITIN [Concomitant]
     Active Substance: LORATADINE
  3. ELURYNG [Suspect]
     Active Substance: ETHINYL ESTRADIOL\ETONOGESTREL
     Indication: MENSTRUATION IRREGULAR
     Dosage: ?          OTHER FREQUENCY:MONTHLY;?
     Route: 067
  4. CLOBETOSOL OINTMENT [Concomitant]
     Active Substance: CLOBETASOL
  5. PIMECROMELUS CREAM [Concomitant]
  6. ELURYNG [Suspect]
     Active Substance: ETHINYL ESTRADIOL\ETONOGESTREL
     Indication: MENORRHAGIA
     Dosage: ?          OTHER FREQUENCY:MONTHLY;?
     Route: 067
  7. MAGNESIUM SUPPLEMENTS [Concomitant]
     Active Substance: MAGNESIUM
  8. IRON SUPPLEMENT [Concomitant]
     Active Substance: IRON
  9. ALTRENO GEL [Concomitant]

REACTIONS (9)
  - Migraine [None]
  - Product substitution issue [None]
  - Disease recurrence [None]
  - Insurance issue [None]
  - Premenstrual syndrome [None]
  - Blood iron decreased [None]
  - Menstruation irregular [None]
  - Product quality issue [None]
  - Vaginal haemorrhage [None]

NARRATIVE: CASE EVENT DATE: 20200608
